FAERS Safety Report 16824015 (Version 1)
Quarter: 2019Q3

REPORT INFORMATION
  Report Type: Spontaneous
  Country: CA (occurrence: CA)
  Receive Date: 20190918
  Receipt Date: 20190918
  Transmission Date: 20191005
  Serious: Yes (Life-Threatening, Hospitalization, Other)
  Sender: FDA-Public Use
  Company Number: CA-ASCEND THERAPEUTICS US, LLC-2074618

PATIENT
  Age: 29 Year
  Sex: Male

DRUGS (3)
  1. PROPECIA [Suspect]
     Active Substance: FINASTERIDE
  2. ESTROGEL [Suspect]
     Active Substance: ESTRADIOL
     Indication: TRANSGENDER HORMONAL THERAPY
     Route: 060
  3. CYPROTERONE ACETATE (CYPROTERONE ACETATE) UNKNOWN [Suspect]
     Active Substance: CYPROTERONE ACETATE

REACTIONS (3)
  - Arrhythmia [Unknown]
  - Ventricular extrasystoles [Unknown]
  - Transgender hormonal therapy [Unknown]
